FAERS Safety Report 8179753-5 (Version None)
Quarter: 2012Q1

REPORT INFORMATION
  Report Type: 
  Country: None (occurrence: None)
  Receive Date: 20120302
  Receipt Date: 20120227
  Transmission Date: 20120608
  Serious: Yes (Death)
  Sender: FDA-Public Use
  Company Number: CA-CELGENEUS-028-21880-12022891

PATIENT
  Sex: Male

DRUGS (5)
  1. GLYBURIDE [Concomitant]
     Route: 065
  2. REVLIMID [Suspect]
     Dosage: 15 MILLIGRAM
     Route: 048
     Dates: start: 20110107
  3. METFORMIN HCL [Concomitant]
     Route: 065
  4. ASPIRIN [Concomitant]
     Route: 065
  5. DECADRON [Concomitant]
     Route: 065

REACTIONS (1)
  - DEATH [None]
